FAERS Safety Report 4554329-7 (Version None)
Quarter: 2005Q1

REPORT INFORMATION
  Report Type: 
  Country: None (occurrence: None)
  Receive Date: 20050118
  Receipt Date: 20050105
  Transmission Date: 20050727
  Serious: Yes (Hospitalization)
  Sender: FDA-Public Use
  Company Number: PHEH2005US00538

PATIENT
  Age: 82 Year
  Sex: Male

DRUGS (1)
  1. DEFEROXAMINE [Suspect]
     Indication: BLOOD IRON INCREASED
     Route: 058
     Dates: end: 20040601

REACTIONS (6)
  - BLOOD PRESSURE DECREASED [None]
  - CARDIOVASCULAR DISORDER [None]
  - FEELING ABNORMAL [None]
  - LOSS OF CONSCIOUSNESS [None]
  - PYREXIA [None]
  - SYNCOPE [None]
